FAERS Safety Report 16363144 (Version 3)
Quarter: 2019Q3

REPORT INFORMATION
  Report Type: Spontaneous
  Country: US (occurrence: US)
  Receive Date: 20190528
  Receipt Date: 20190822
  Transmission Date: 20191004
  Serious: Yes (Other)
  Sender: FDA-Public Use
  Company Number: US-JNJFOC-20190535220

PATIENT
  Age: 90 Year
  Sex: Male
  Weight: 63.56 kg

DRUGS (3)
  1. SPIRONOLACTONE. [Concomitant]
     Active Substance: SPIRONOLACTONE
     Route: 065
  2. LASIX [Concomitant]
     Active Substance: FUROSEMIDE
     Route: 065
  3. XARELTO [Suspect]
     Active Substance: RIVAROXABAN
     Indication: DEEP VEIN THROMBOSIS
     Route: 048
     Dates: start: 201509

REACTIONS (8)
  - Thrombosis [Not Recovered/Not Resolved]
  - Limb injury [Not Recovered/Not Resolved]
  - Road traffic accident [Unknown]
  - Drug ineffective [Not Recovered/Not Resolved]
  - Cardiac failure congestive [Unknown]
  - Weight decreased [Unknown]
  - Lumbar vertebral fracture [Unknown]
  - Carpal tunnel syndrome [Unknown]

NARRATIVE: CASE EVENT DATE: 2016
